FAERS Safety Report 23305839 (Version 2)
Quarter: 2023Q4

REPORT INFORMATION
  Report Type: Report from Study
  Country: AT (occurrence: AT)
  Receive Date: 20231218
  Receipt Date: 20231220
  Transmission Date: 20240109
  Serious: Yes (Hospitalization, Other)
  Sender: FDA-Public Use
  Company Number: AT-PFM-2023-07063

PATIENT
  Sex: Male
  Weight: 93 kg

DRUGS (14)
  1. BRAFTOVI [Suspect]
     Active Substance: ENCORAFENIB
     Indication: Colorectal cancer
     Dosage: 300 MG, DAILY
     Route: 048
     Dates: start: 20230705, end: 20231122
  2. CETUXIMAB [Suspect]
     Active Substance: CETUXIMAB
     Indication: Colorectal cancer
     Dosage: 500 MG/M2, WEEKLY (1 DOSE IN EVERY 7 DAY INTERVAL)
     Route: 042
     Dates: start: 20230705, end: 20231122
  3. METFORMIN [Concomitant]
     Active Substance: METFORMIN HYDROCHLORIDE
     Indication: Diabetes mellitus
     Dosage: 500 MG, BID (2/DAY)
     Route: 048
     Dates: start: 20201016
  4. ZOLPIDEM [Concomitant]
     Active Substance: ZOLPIDEM TARTRATE
     Indication: Prophylaxis
     Dosage: 10 MG, PRN
     Route: 048
     Dates: start: 20230620, end: 20231204
  5. IBUPROFEN [Concomitant]
     Active Substance: IBUPROFEN
     Indication: Prophylaxis
     Dosage: 400 MG, PRN
     Route: 048
     Dates: start: 20230620
  6. NOVALGIN (METAMIZOLE SODIUM) [Concomitant]
     Active Substance: METAMIZOLE SODIUM
     Indication: Prophylaxis
     Dosage: 500 MG, BID (2/DAY)
     Route: 048
     Dates: start: 20230704
  7. NOVALGIN (METAMIZOLE SODIUM) [Concomitant]
     Active Substance: METAMIZOLE SODIUM
     Indication: Prophylaxis
     Dosage: 15 UNK, PRN (DOSAGE FORM: DROPS)
     Route: 048
     Dates: start: 20230704
  8. PANTOPRAZOLE SODIUM [Concomitant]
     Active Substance: PANTOPRAZOLE SODIUM
     Indication: Prophylaxis
     Dosage: 40 MG, PRN
     Route: 048
     Dates: start: 20230704
  9. DOXYCYCLINE [Concomitant]
     Active Substance: DOXYCYCLINE
     Indication: Prophylaxis
     Dosage: 200 MG, PRN
     Route: 048
     Dates: start: 20230705
  10. EXCIPIAL U10 LIPOLOTION [Concomitant]
     Indication: Prophylaxis
     Dosage: 1 UNK, PRN
     Route: 061
     Dates: start: 20230705
  11. HYDROMORPHONE HYDROCHLORIDE [Concomitant]
     Active Substance: HYDROMORPHONE HYDROCHLORIDE
     Indication: Pain
     Dosage: 4 MG, BID (2/DAY)
     Route: 048
     Dates: start: 20231122
  12. LENDORM [Concomitant]
     Active Substance: BROTIZOLAM
     Indication: Prophylaxis
     Dosage: 0.25 MG DAILY
     Route: 048
     Dates: start: 20231205
  13. POLYETHYLENE GLYCOL 3350\POTASSIUM CHLORIDE\SODIUM BICARBONATE\SODIUM [Concomitant]
     Active Substance: POLYETHYLENE GLYCOL 3350\POTASSIUM CHLORIDE\SODIUM BICARBONATE\SODIUM CHLORIDE
     Indication: Prophylaxis
     Dosage: 1 DF, DAILY (1 DAILY)
     Route: 048
     Dates: start: 20231205
  14. HYDROMORPHONE HYDROCHLORIDE [Concomitant]
     Active Substance: HYDROMORPHONE HYDROCHLORIDE
     Indication: Pain
     Dosage: 1.3 MG, PRN
     Route: 048
     Dates: start: 20231122

REACTIONS (2)
  - Dyspnoea [Not Recovered/Not Resolved]
  - General physical health deterioration [Unknown]

NARRATIVE: CASE EVENT DATE: 20231205
